FAERS Safety Report 4640019-9 (Version None)
Quarter: 2005Q2

REPORT INFORMATION
  Report Type: 
  Country: None (occurrence: None)
  Receive Date: 20050415
  Receipt Date: 20050415
  Transmission Date: 20051028
  Serious: Yes (Hospitalization)
  Sender: FDA-Public Use
  Company Number: None

PATIENT
  Age: 65 Year
  Sex: Male
  Weight: 79.4 kg

DRUGS (8)
  1. BENZTROPINE [Suspect]
     Dosage: 0.5 MG TID PO
     Route: 048
     Dates: start: 20050218, end: 20050228
  2. DIVALPROEX SODIUM [Concomitant]
  3. OLANZAPINE [Concomitant]
  4. CALCITRIOL [Concomitant]
  5. CALCIUM CARBONATE [Concomitant]
  6. LEVOTHYROXINE SODIUM [Concomitant]
  7. MAGNESIUM OXIDE [Concomitant]
  8. POTASSIUM CHLORIDE [Concomitant]

REACTIONS (2)
  - CONFUSIONAL STATE [None]
  - COORDINATION ABNORMAL [None]
